FAERS Safety Report 22234885 (Version 1)
Quarter: 2023Q2

REPORT INFORMATION
  Report Type: Spontaneous
  Country: US (occurrence: None)
  Receive Date: 20230419
  Receipt Date: 20230419
  Transmission Date: 20230722
  Serious: No
  Sender: FDA-Public Use
  Company Number: None

PATIENT
  Sex: Female
  Weight: 101.7 kg

DRUGS (5)
  1. BUPRENORPHINE [Suspect]
     Active Substance: BUPRENORPHINE
     Indication: Drug dependence
     Dosage: OTHER QUANTITY : 30 TABLET(S);?FREQUENCY : TWICE A DAY;?
     Route: 060
     Dates: start: 20230418, end: 20230419
  2. Seroquel  Rimeron [Concomitant]
  3. ZYRTEC [Concomitant]
     Active Substance: CETIRIZINE HYDROCHLORIDE
  4. Vitamin D [Concomitant]
  5. Elderberry gel tabs [Concomitant]

REACTIONS (7)
  - Drug ineffective [None]
  - Tongue blistering [None]
  - Tongue discomfort [None]
  - Headache [None]
  - Nausea [None]
  - Withdrawal syndrome [None]
  - Product substitution issue [None]
